FAERS Safety Report 9437525 (Version 2)
Quarter: 2013Q4

REPORT INFORMATION
  Report Type: Spontaneous
  Country: US (occurrence: US)
  Receive Date: 20130731
  Receipt Date: 20131001
  Transmission Date: 20140711
  Serious: Yes (Hospitalization)
  Sender: FDA-Public Use
  Company Number: ACO_36845_2013

PATIENT
  Age: 58 Year
  Sex: Male
  Weight: 97.5 kg

DRUGS (9)
  1. AMPYRA [Suspect]
     Indication: MULTIPLE SCLEROSIS
     Route: 048
     Dates: start: 201104
  2. DIOVAN (VALSARTAN) [Concomitant]
  3. REGLAN (METOCLOPRAMIDE HYDROCHLORIDE) [Concomitant]
  4. TIZANIDINE (TIZANIDINE HYDROCHLORIDE) [Concomitant]
  5. ASPIRIN (ACETYLSALICYLIC ACID) [Concomitant]
  6. SIMVASTATIN (SIMVASTATIN) [Concomitant]
  7. HYDROCODONE BITARTRATE AND ACETAMINOPHEN (HYDROCODONE BITARTRATE, PARACETAMOL) [Concomitant]
  8. VALSARTAN + HIDROCLOROTIAZIDA (HYDROCHLOROTHIAZIDE, VALSARTAN) [Concomitant]
  9. AMPYRA [Suspect]
     Indication: GAIT DISTURBANCE
     Route: 048
     Dates: start: 201104

REACTIONS (4)
  - Transient ischaemic attack [None]
  - Nausea [None]
  - Vomiting [None]
  - Insomnia [None]
